FAERS Safety Report 6530133-5 (Version None)
Quarter: 2010Q1

REPORT INFORMATION
  Report Type: 
  Country: None (occurrence: None)
  Receive Date: 20100107
  Receipt Date: 20091229
  Transmission Date: 20100710
  Serious: Yes (Hospitalization)
  Sender: FDA-Public Use
  Company Number: US-ASTRAZENECA-2009SE33847

PATIENT
  Age: 89 Year
  Sex: Male
  Weight: 72.6 kg

DRUGS (1)
  1. SYMBICORT [Suspect]
     Route: 055
     Dates: start: 20091101

REACTIONS (1)
  - HEART VALVE REPLACEMENT [None]
